FAERS Safety Report 10733791 (Version 1)
Quarter: 2015Q1

REPORT INFORMATION
  Report Type: Spontaneous
  Country: US (occurrence: US)
  Receive Date: 20150123
  Receipt Date: 20150123
  Transmission Date: 20150721
  Serious: Yes (Death, Hospitalization, Other)
  Sender: FDA-Public Use
  Company Number: US-MYLANLABS-2015M1001307

PATIENT

DRUGS (2)
  1. METHOTREXATE [Suspect]
     Active Substance: METHOTREXATE
     Indication: HAIRY CELL LEUKAEMIA
     Dosage: HIGH DOSE
     Route: 065
  2. CLADRIBINE. [Suspect]
     Active Substance: CLADRIBINE
     Indication: HAIRY CELL LEUKAEMIA
     Dosage: 7 DAYS
     Route: 065

REACTIONS (7)
  - Neutropenia [Unknown]
  - Hypotension [Not Recovered/Not Resolved]
  - Escherichia sepsis [Fatal]
  - Gastrointestinal haemorrhage [Fatal]
  - Haemorrhage [Unknown]
  - Anaemia [Unknown]
  - Tachycardia [Not Recovered/Not Resolved]
